FAERS Safety Report 4771402-9 (Version None)
Quarter: 2005Q3

REPORT INFORMATION
  Report Type: 
  Country: None (occurrence: None)
  Receive Date: 20050914
  Receipt Date: 20050831
  Transmission Date: 20060218
  Serious: Yes (Hospitalization)
  Sender: FDA-Public Use
  Company Number: 217376

PATIENT
  Age: 59 Year
  Sex: Female

DRUGS (4)
  1. RAPTIVA [Suspect]
     Indication: PSORIASIS
     Dosage: 0.5 ML, 1/WEEK, SUBCUTANEOUS
     Route: 058
     Dates: start: 20050727, end: 20050817
  2. NORVASC [Concomitant]
  3. PREMARIN [Concomitant]
  4. TRAMADOL HCL [Concomitant]

REACTIONS (2)
  - LYMPHADENOPATHY [None]
  - PYREXIA [None]
